FAERS Safety Report 7068212-9 (Version None)
Quarter: 2010Q4

REPORT INFORMATION
  Report Type: 
  Country: None (occurrence: None)
  Receive Date: 20101028
  Receipt Date: 20101025
  Transmission Date: 20110411
  Serious: Yes (Life-Threatening, Hospitalization)
  Sender: FDA-Public Use
  Company Number: DE-ROCHE-732524

PATIENT
  Sex: Female
  Weight: 55 kg

DRUGS (4)
  1. TOCILIZUMAB [Suspect]
     Indication: RHEUMATOID ARTHRITIS
     Dosage: 8 MG/KG
     Route: 042
     Dates: start: 20100929
  2. PREDNISOLON [Concomitant]
     Indication: RHEUMATOID ARTHRITIS
     Route: 048
     Dates: start: 20100901
  3. NOVALGIN [Concomitant]
     Route: 048
  4. FE [Concomitant]
     Dosage: FE++

REACTIONS (2)
  - CHOLECYSTITIS [None]
  - HEPATITIS [None]
